FAERS Safety Report 8345571-8 (Version None)
Quarter: 2012Q2

REPORT INFORMATION
  Report Type: 
  Country: None (occurrence: None)
  Receive Date: 20120508
  Receipt Date: 20111025
  Transmission Date: 20120825
  Serious: No
  Sender: FDA-Public Use
  Company Number: US-BAUSCH-2011BL007333

PATIENT
  Age: 36 Year
  Sex: Male

DRUGS (2)
  1. ALREX [Suspect]
     Indication: INJURY CORNEAL
     Route: 047
     Dates: start: 20111017, end: 20111017
  2. REFRESH [Concomitant]

REACTIONS (1)
  - VITREOUS FLOATERS [None]
